FAERS Safety Report 10284773 (Version 1)
Quarter: 2014Q3

REPORT INFORMATION
  Report Type: Spontaneous
  Country: AU (occurrence: AU)
  Receive Date: 20140708
  Receipt Date: 20140708
  Transmission Date: 20150326
  Serious: Yes (Hospitalization)
  Sender: FDA-Public Use
  Company Number: AU-MERCK-1407AUS003046

PATIENT
  Age: 71 Year
  Sex: Female
  Weight: 80 kg

DRUGS (9)
  1. ASPIRIN. [Concomitant]
     Active Substance: ASPIRIN
  2. KRILL OIL [Concomitant]
     Active Substance: DIETARY SUPPLEMENT
  3. VITAMIN E [Concomitant]
     Active Substance: .ALPHA.-TOCOPHEROL
  4. DENOSUMAB [Suspect]
     Active Substance: DENOSUMAB
     Dosage: 60 MG, ONCE
     Route: 058
     Dates: start: 20130815, end: 20130815
  5. DENOSUMAB [Suspect]
     Active Substance: DENOSUMAB
     Dosage: 60 MG, ONCE
     Route: 058
     Dates: start: 201406, end: 201406
  6. AMIODARONE HYDROCHLORIDE. [Concomitant]
     Active Substance: AMIODARONE HYDROCHLORIDE
  7. EZETROL [Suspect]
     Active Substance: EZETIMIBE
     Dosage: 10 MG, UNK
     Route: 048
  8. CRANBERRY. [Concomitant]
     Active Substance: CRANBERRY
  9. ROSUVASTATIN CALCIUM [Suspect]
     Active Substance: ROSUVASTATIN CALCIUM
     Dosage: 40 MG, UNK
     Route: 048

REACTIONS (2)
  - Rhabdomyolysis [Not Recovered/Not Resolved]
  - Hypocalcaemia [Not Recovered/Not Resolved]

NARRATIVE: CASE EVENT DATE: 20140313
